FAERS Safety Report 6527489-6 (Version None)
Quarter: 2010Q1

REPORT INFORMATION
  Report Type: 
  Country: None (occurrence: None)
  Receive Date: 20100105
  Receipt Date: 20091229
  Transmission Date: 20100710
  Serious: Yes (Other)
  Sender: FDA-Public Use
  Company Number: CHPA2009US24189

PATIENT
  Age: 73 Year
  Sex: Female

DRUGS (2)
  1. TRANSDERM SCOP [Suspect]
     Indication: MOTION SICKNESS
     Dosage: 1 PATCH EVERY THREE DAYS
     Route: 062
     Dates: start: 20091208, end: 20091222
  2. TRANSDERM SCOP [Suspect]
     Dosage: UNK, UNK
     Route: 062

REACTIONS (4)
  - GAIT DISTURBANCE [None]
  - MALAISE [None]
  - VOMITING [None]
  - WEIGHT DECREASED [None]
